FAERS Safety Report 15587879 (Version 1)
Quarter: 2018Q4

REPORT INFORMATION
  Report Type: Spontaneous
  Country: US (occurrence: US)
  Receive Date: 20181105
  Receipt Date: 20181105
  Transmission Date: 20190205
  Serious: No
  Sender: FDA-Public Use
  Company Number: US-SA-2018SA303459

PATIENT
  Age: 68 Year
  Sex: Female

DRUGS (1)
  1. TOUJEO [Suspect]
     Active Substance: INSULIN GLARGINE
     Dosage: UNK
     Dates: start: 20181027

REACTIONS (3)
  - Hypoaesthesia oral [Unknown]
  - Heart rate increased [Unknown]
  - Blood glucose decreased [Unknown]
